FAERS Safety Report 7164038-6 (Version None)
Quarter: 2010Q4

REPORT INFORMATION
  Report Type: 
  Country: None (occurrence: None)
  Receive Date: 20101215
  Receipt Date: 20101207
  Transmission Date: 20110411
  Serious: Yes (Other)
  Sender: FDA-Public Use
  Company Number: B0686176A

PATIENT
  Sex: Male

DRUGS (12)
  1. LAMICTAL [Suspect]
     Indication: EPILEPSY
     Dosage: 300MG PER DAY
     Route: 048
     Dates: start: 20100302, end: 20101108
  2. LAMICTAL [Suspect]
     Dosage: 400MG PER DAY
     Route: 048
     Dates: start: 20101109, end: 20101116
  3. TEGRETOL [Suspect]
     Indication: EPILEPSY
     Dosage: 400MG PER DAY
     Route: 048
     Dates: start: 20100224, end: 20101116
  4. RIVOTRIL [Suspect]
     Indication: PRODUCT USED FOR UNKNOWN INDICATION
     Route: 048
  5. ALEVIATIN [Suspect]
     Indication: PRODUCT USED FOR UNKNOWN INDICATION
     Route: 065
  6. BUP-4 [Concomitant]
     Indication: DYSURIA
     Dosage: 20MG PER DAY
     Route: 048
     Dates: start: 20100312, end: 20101116
  7. EXCEGRAN [Concomitant]
     Indication: EPILEPSY
     Dosage: 1G PER DAY
     Route: 048
     Dates: start: 20100224, end: 20101116
  8. ASPIRIN [Concomitant]
     Indication: CEREBRAL INFARCTION
     Dosage: 100MG PER DAY
     Route: 048
     Dates: start: 20100224, end: 20101116
  9. GASTER [Concomitant]
     Indication: GASTRITIS
     Dosage: 20MG PER DAY
     Route: 048
     Dates: start: 20100224, end: 20101116
  10. TAMSULOSIN HYDROCHLORIDE [Concomitant]
     Indication: DYSURIA
     Dosage: .2MG PER DAY
     Route: 048
     Dates: start: 20100302, end: 20101116
  11. DOGMATYL [Concomitant]
     Indication: DECREASED APPETITE
     Dosage: 150MG PER DAY
     Route: 048
     Dates: start: 20100714, end: 20101116
  12. AVOLVE [Concomitant]
     Indication: DYSURIA
     Dosage: .5MG PER DAY
     Route: 048
     Dates: start: 20100302, end: 20101116

REACTIONS (1)
  - INTERSTITIAL LUNG DISEASE [None]
